FAERS Safety Report 4304043-8 (Version None)
Quarter: 2004Q1

REPORT INFORMATION
  Report Type: 
  Country: None (occurrence: None)
  Receive Date: 20040223
  Receipt Date: 20031124
  Transmission Date: 20041129
  Serious: No
  Sender: FDA-Public Use
  Company Number: PHEH2003US09214

PATIENT
  Age: 86 Year
  Sex: Female
  Weight: 61.7 kg

DRUGS (7)
  1. ZELNORM [Suspect]
     Indication: IRRITABLE BOWEL SYNDROME
     Dosage: 6 MG, QD, ORAL
     Route: 048
     Dates: start: 20031003, end: 20031009
  2. CIMETIDINE HCL [Concomitant]
  3. ACETYLSALICYLIC ACID SRT [Concomitant]
  4. LEVOXYL [Concomitant]
  5. DOCUSATE (DOCUSATE) [Concomitant]
  6. DICYCLOMINE HYDROCHLORIDE (DICYCLOVERINE HYDROCHLORIDE) [Concomitant]
  7. PREMARIN [Concomitant]

REACTIONS (2)
  - ASTHENIA [None]
  - DIZZINESS [None]
